FAERS Safety Report 10735701 (Version 1)
Quarter: 2015Q1

REPORT INFORMATION
  Report Type: Spontaneous
  Country: DE (occurrence: None)
  Receive Date: 20150121
  Receipt Date: 20150121
  Transmission Date: 20150721
  Serious: Yes (Other)
  Sender: FDA-Public Use
  Company Number: 2015SCAL000001

PATIENT
  Age: 50 Year
  Sex: Female

DRUGS (2)
  1. DULOXETINE HYDROCHLORIDE. [Suspect]
     Active Substance: DULOXETINE HYDROCHLORIDE
     Indication: BACK PAIN
     Route: 048
     Dates: start: 20110520, end: 20110725
  2. GABAPENTIN (GABAPENTIN) [Concomitant]
     Active Substance: GABAPENTIN

REACTIONS (10)
  - Blood chromogranin A increased [None]
  - 5-hydroxyindolacetic acid in urine increased [None]
  - Rash [None]
  - Hypertensive crisis [None]
  - Rash generalised [None]
  - Dysgeusia [None]
  - Hot flush [None]
  - Anxiety [None]
  - Muscular weakness [None]
  - Conjunctivitis [None]

NARRATIVE: CASE EVENT DATE: 201105
